FAERS Safety Report 4896017-3 (Version None)
Quarter: 2005Q4

REPORT INFORMATION
  Report Type: 
  Country: None (occurrence: None)
  Receive Date: 20051220
  Receipt Date: 20050303
  Transmission Date: 20060501
  Serious: Yes (Other)
  Sender: FDA-Public Use
  Company Number: 397584

PATIENT
  Age: 2 Year
  Sex: Male

DRUGS (1)
  1. TAMIFLU [Suspect]
     Indication: DRUG USE FOR UNKNOWN INDICATION
     Dosage: 150 MG 2 PER DAY ORAL
     Route: 048

REACTIONS (2)
  - NO ADVERSE EFFECT [None]
  - OVERDOSE [None]
